FAERS Safety Report 5374955-5 (Version None)
Quarter: 2007Q2

REPORT INFORMATION
  Report Type: 
  Country: None (occurrence: None)
  Receive Date: 20070629
  Receipt Date: 20070622
  Transmission Date: 20071010
  Serious: Yes (Death, Hospitalization, Other)
  Sender: FDA-Public Use
  Company Number: FR-ELI_LILLY_AND_COMPANY-FR200706002776

PATIENT
  Age: 60 Year
  Sex: Female

DRUGS (12)
  1. PROZAC [Suspect]
     Indication: DEPRESSION
     Dosage: UNK, UNKNOWN
     Route: 048
  2. GEMZAR [Suspect]
     Indication: NON-SMALL CELL LUNG CANCER
     Dosage: 2400 MG, OTHER
     Route: 042
     Dates: start: 20070425
  3. CISPLATIN [Concomitant]
     Indication: NON-SMALL CELL LUNG CANCER
     Dosage: 140 MG, OTHER
     Route: 042
     Dates: start: 20070425
  4. OTHER ANTINEOPLASTIC AGENTS [Concomitant]
     Indication: NON-SMALL CELL LUNG CANCER
     Dosage: 400 MG, 2/D
     Route: 048
     Dates: start: 20070425
  5. VALIUM [Concomitant]
     Dosage: UNK, UNKNOWN
     Route: 048
  6. STILNOX /FRA/ [Concomitant]
     Dosage: UNK, UNKNOWN
     Route: 048
  7. XANAX [Concomitant]
     Dosage: UNK, UNKNOWN
     Route: 048
  8. VOLTAREN [Concomitant]
     Indication: BACK PAIN
     Dosage: UNK, UNKNOWN
     Route: 065
     Dates: end: 20070504
  9. DAFALGAN /FRA/ [Concomitant]
     Dosage: UNK, UNKNOWN
     Route: 048
  10. PRIMPERAN                               /SCH/ [Concomitant]
     Dosage: UNK, UNKNOWN
     Route: 048
     Dates: start: 20070425, end: 20070427
  11. SOLU-MEDROL [Concomitant]
     Dosage: 120 MG, OTHER
     Route: 042
     Dates: start: 20070502, end: 20070502
  12. ZOFRAN [Concomitant]
     Dosage: 8 MG, OTHER
     Route: 065
     Dates: start: 20070425, end: 20070425

REACTIONS (4)
  - GAIT DISTURBANCE [None]
  - GRAND MAL CONVULSION [None]
  - RENAL FAILURE [None]
  - SCIATICA [None]
